FAERS Safety Report 4583080-2 (Version None)
Quarter: 2005Q1

REPORT INFORMATION
  Report Type: 
  Country: None (occurrence: None)
  Receive Date: 20050125
  Receipt Date: 20041001
  Transmission Date: 20050727
  Serious: No
  Sender: FDA-Public Use
  Company Number: USA041080039

PATIENT
  Age: 52 Year
  Sex: Female

DRUGS (3)
  1. EVISTA [Suspect]
  2. FORTEO [Suspect]
     Dates: start: 20040801
  3. FOSAMAX [Concomitant]

REACTIONS (1)
  - BONE DENSITY DECREASED [None]
